FAERS Safety Report 15197248 (Version 1)
Quarter: 2018Q3

REPORT INFORMATION
  Report Type: Spontaneous
  Country: US (occurrence: US)
  Receive Date: 20180725
  Receipt Date: 20180725
  Transmission Date: 20181010
  Serious: No
  Sender: FDA-Public Use
  Company Number: US-ACTELION-A-NJ2018-169827

PATIENT
  Age: 84 Year
  Sex: Female

DRUGS (14)
  1. SIMVASTATIN. [Concomitant]
     Active Substance: SIMVASTATIN
     Dosage: 40 MG, QD
  2. SILDENAFIL. [Concomitant]
     Active Substance: SILDENAFIL
     Dosage: 20 MG, TID
  3. OPSUMIT [Suspect]
     Active Substance: MACITENTAN
     Indication: PULMONARY HYPERTENSION
     Dosage: 10 MG, QD
     Route: 048
     Dates: start: 201803
  4. LISINOPRIL. [Concomitant]
     Active Substance: LISINOPRIL
     Dosage: 10 MG, QD
  5. RANITIDINE. [Concomitant]
     Active Substance: RANITIDINE
     Dosage: 300 MG, QD
  6. NEURONTIN [Concomitant]
     Active Substance: GABAPENTIN
     Dosage: 300 MG, TID
  7. BABY ASPIRIN [Concomitant]
     Active Substance: ASPIRIN
     Dosage: 81 MG, QD
  8. MULTIVITAMINUM [Concomitant]
     Dosage: 1 TABLET QD
  9. TYLENOL PM [Concomitant]
     Active Substance: ACETAMINOPHEN\DIPHENHYDRAMINE
     Dosage: UNK, QD
  10. FUROSEMIDE. [Concomitant]
     Active Substance: FUROSEMIDE
     Dosage: 20 MG, MWF
  11. TUMS [Concomitant]
     Active Substance: CALCIUM CARBONATE
     Dosage: 1 TABLET BID
  12. VITAMIN D3 [Concomitant]
     Active Substance: CHOLECALCIFEROL
     Dosage: 1 TABLET QD
  13. COLACE [Concomitant]
     Active Substance: DOCUSATE SODIUM
     Dosage: UNK
  14. LEVOTHYROXINE. [Concomitant]
     Active Substance: LEVOTHYROXINE
     Dosage: 75 MG, BID

REACTIONS (2)
  - Tremor [Unknown]
  - Dizziness [Not Recovered/Not Resolved]

NARRATIVE: CASE EVENT DATE: 20180320
